FAERS Safety Report 4668487-7 (Version None)
Quarter: 2005Q2

REPORT INFORMATION
  Report Type: 
  Country: None (occurrence: None)
  Receive Date: 20050523
  Receipt Date: 20050207
  Transmission Date: 20051028
  Serious: Yes (Other)
  Sender: FDA-Public Use
  Company Number: PHEH2005US01780

PATIENT
  Age: 58 Year
  Sex: Male

DRUGS (10)
  1. PAMIDRONATE DISODIUM [Suspect]
  2. DOXORUBICIN HCL [Concomitant]
  3. DEXAMETHASONE [Concomitant]
  4. THIOTEPA [Concomitant]
  5. MELPHALAN [Concomitant]
  6. BUSULPHAN [Concomitant]
  7. GENASENSE [Concomitant]
  8. GM-CSF [Concomitant]
  9. ZOLEDRONIC ACID [Suspect]
  10. VINCRISTINE [Concomitant]

REACTIONS (3)
  - INFECTION [None]
  - OSTEONECROSIS [None]
  - POSTOPERATIVE INFECTION [None]
